FAERS Safety Report 10295894 (Version 1)
Quarter: 2014Q3

REPORT INFORMATION
  Report Type: Spontaneous
  Country: US (occurrence: None)
  Receive Date: 20140709
  Receipt Date: 20140709
  Transmission Date: 20150326
  Serious: No
  Sender: FDA-Public Use
  Company Number: DL2014-0304

PATIENT
  Age: 22 Year
  Sex: Female

DRUGS (3)
  1. MISOPROSTOL. [Suspect]
     Active Substance: MISOPROSTOL
     Dosage: 800 MCG, BUCCAL
     Route: 002
     Dates: start: 20140121
  2. AZITHROMYCIN [Concomitant]
     Active Substance: AZITHROMYCIN ANHYDROUS
  3. MIFEPRISTONE [Suspect]
     Active Substance: MIFEPRISTONE
     Indication: ABORTION INDUCED
     Route: 048
     Dates: start: 20140120

REACTIONS (4)
  - Malaise [None]
  - Pyrexia [None]
  - Abortion incomplete [None]
  - Pain [None]

NARRATIVE: CASE EVENT DATE: 20140129
